FAERS Safety Report 22236230 (Version 1)
Quarter: 2023Q2

REPORT INFORMATION
  Report Type: Spontaneous
  Country: ES (occurrence: ES)
  Receive Date: 20230420
  Receipt Date: 20230420
  Transmission Date: 20230722
  Serious: Yes (Other)
  Sender: FDA-Public Use
  Company Number: ES-TEVA-2023-ES-2877824

PATIENT
  Age: 58 Year
  Sex: Male

DRUGS (2)
  1. QUETIAPINE [Suspect]
     Active Substance: QUETIAPINE
     Indication: Impulse-control disorder
     Route: 065
  2. CARBIDOPA\LEVODOPA [Suspect]
     Active Substance: CARBIDOPA\LEVODOPA
     Indication: Parkinson^s disease
     Dosage: THE PATIENT RECEIVED LEVODOPA/CARBIDOPA INTESTINAL GEL; INITIAL DOSE OF LEVODOPA WAS 1246 MG/DAY;
     Route: 065

REACTIONS (4)
  - Impulse-control disorder [Not Recovered/Not Resolved]
  - Gambling disorder [Unknown]
  - Hypersexuality [Unknown]
  - Drug ineffective [Unknown]
